FAERS Safety Report 6676308-6 (Version None)
Quarter: 2010Q2

REPORT INFORMATION
  Report Type: 
  Country: None (occurrence: None)
  Receive Date: 20100412
  Receipt Date: 20100325
  Transmission Date: 20101027
  Serious: Yes (Hospitalization)
  Sender: FDA-Public Use
  Company Number: DE-BAYER-201021297GPV

PATIENT
  Age: 66 Year
  Sex: Male

DRUGS (9)
  1. SORAFENIB [Suspect]
     Indication: HEPATIC NEOPLASM MALIGNANT
     Route: 048
     Dates: start: 20091116, end: 20091120
  2. SORAFENIB [Suspect]
     Route: 048
     Dates: start: 20091127
  3. 4SC-201 [Suspect]
     Indication: HEPATIC NEOPLASM MALIGNANT
     Route: 048
     Dates: start: 20091116
  4. METOHEXAL [Concomitant]
  5. AMLODIPINE [Concomitant]
  6. TRITACE [Concomitant]
  7. TORSEMIDE [Concomitant]
  8. INSULIN [Concomitant]
  9. ENOXAPARIN SODIUM [Concomitant]

REACTIONS (1)
  - TROPONIN I INCREASED [None]
